FAERS Safety Report 23785454 (Version 1)
Quarter: 2024Q2

REPORT INFORMATION
  Report Type: Spontaneous
  Country: BG (occurrence: BG)
  Receive Date: 20240425
  Receipt Date: 20240425
  Transmission Date: 20240715
  Serious: Yes (Death)
  Sender: FDA-Public Use
  Company Number: BG-Eisai-EC-2024-164292

PATIENT
  Age: 56 Year
  Sex: Female

DRUGS (2)
  1. HALAVEN [Suspect]
     Active Substance: ERIBULIN MESYLATE
     Indication: Breast cancer
     Dosage: 1.23 MG/M2 ON DAYS 1 AND 8 OF EVERY 21-DAY CYCLE
     Route: 042
     Dates: start: 20230825
  2. DENOSUMAB [Concomitant]
     Active Substance: DENOSUMAB
     Indication: Breast cancer
     Route: 065
     Dates: start: 202211

REACTIONS (6)
  - Multiple organ dysfunction syndrome [Fatal]
  - Fatigue [Unknown]
  - Asthenia [Unknown]
  - Decreased appetite [Unknown]
  - Gastrointestinal haemorrhage [Unknown]
  - Blood urine present [Unknown]

NARRATIVE: CASE EVENT DATE: 20230101
